FAERS Safety Report 5897332-7 (Version None)
Quarter: 2008Q3

REPORT INFORMATION
  Report Type: 
  Country: None (occurrence: None)
  Receive Date: 20080925
  Receipt Date: 20080922
  Transmission Date: 20090109
  Serious: Yes (Hospitalization)
  Sender: FDA-Public Use
  Company Number: FR-WYE-G02206808

PATIENT
  Sex: Male

DRUGS (6)
  1. EFFEXOR [Suspect]
     Route: 048
     Dates: end: 20080827
  2. TERONAC [Suspect]
     Route: 048
     Dates: start: 20060701, end: 20070901
  3. CONCERTA [Suspect]
     Dosage: UNKNOWN
     Dates: end: 20070901
  4. RITALIN [Suspect]
     Indication: NARCOLEPSY
     Route: 048
     Dates: start: 20070901, end: 20080801
  5. RITALIN [Suspect]
     Dosage: UNKNOWN
     Route: 048
     Dates: start: 20080801
  6. XYREM [Suspect]
     Indication: NARCOLEPSY
     Dosage: UNKNOWN
     Route: 048
     Dates: start: 20070901

REACTIONS (4)
  - CARDIAC VENTRICULOGRAM RIGHT ABNORMAL [None]
  - CONDITION AGGRAVATED [None]
  - SINUS TACHYCARDIA [None]
  - VENTRICULAR EXTRASYSTOLES [None]
